FAERS Safety Report 10090256 (Version 1)
Quarter: 2014Q2

REPORT INFORMATION
  Report Type: Spontaneous
  Country: US (occurrence: None)
  Receive Date: 20140411
  Receipt Date: 20140411
  Transmission Date: 20141212
  Serious: No
  Sender: FDA-Public Use
  Company Number: 2013US002923

PATIENT
  Age: 73 Year
  Sex: Female

DRUGS (1)
  1. ICLUSIG (PONATINIB) TABLET, 45MG [Suspect]
     Indication: CHRONIC MYELOID LEUKAEMIA
     Route: 048
     Dates: end: 2013

REACTIONS (6)
  - Feeling abnormal [None]
  - Rash [None]
  - Pain in extremity [None]
  - Back pain [None]
  - Cough [None]
  - Dyspnoea [None]
